FAERS Safety Report 19459314 (Version 3)
Quarter: 2021Q4

REPORT INFORMATION
  Report Type: Report from Study
  Country: US (occurrence: None)
  Receive Date: 20210624
  Receipt Date: 20211109
  Transmission Date: 20220304
  Serious: Yes (Hospitalization)
  Sender: FDA-Public Use
  Company Number: US-ROCHE-2430916

PATIENT
  Age: 49 Year
  Sex: Female
  Weight: 77.1 kg

DRUGS (37)
  1. PLACEBO [Suspect]
     Active Substance: UNSPECIFIED INGREDIENT
     Indication: Primary progressive multiple sclerosis
     Dosage: SUBSEQUENT DOSES OF RECEIVED ON 05/NOV/2012, 08/APR/2013, 23/APR/2013, 08/OCT/2013, 23/SEP/2013, 10/
     Route: 042
     Dates: start: 20121023, end: 20151115
  2. OCRELIZUMAB [Suspect]
     Active Substance: OCRELIZUMAB
     Indication: Primary progressive multiple sclerosis
     Dosage: IV INFUSIONS OF OCRELIZUMAB 300 MG (260ML) FOR CYCLE 1 AND SINGLE IV INFUSION OF OCRELIZUMAB 600 MG
     Route: 042
     Dates: start: 20151116
  3. CIPROFLOXACIN [Suspect]
     Active Substance: CIPROFLOXACIN
     Indication: Urinary tract infection
     Route: 065
     Dates: start: 201707, end: 201708
  4. CIPROFLOXACIN [Suspect]
     Active Substance: CIPROFLOXACIN
     Indication: Pyrexia
     Route: 065
     Dates: start: 20161107, end: 20161112
  5. CIPROFLOXACIN [Suspect]
     Active Substance: CIPROFLOXACIN
     Route: 065
     Dates: start: 20190725, end: 20190804
  6. ALPHA LIPOIC ACID [Concomitant]
     Active Substance: .ALPHA.-LIPOIC ACID
     Dosage: SUPPLEMENT
     Dates: start: 201705
  7. BACLOFEN [Concomitant]
     Active Substance: BACLOFEN
     Indication: Muscle spasticity
     Dates: start: 2016
  8. BACLOFEN [Concomitant]
     Active Substance: BACLOFEN
     Dates: start: 2016
  9. BACLOFEN [Concomitant]
     Active Substance: BACLOFEN
     Dates: start: 20140826, end: 2016
  10. NORVASC [Concomitant]
     Active Substance: AMLODIPINE BESYLATE
     Indication: Hypertension
     Dates: start: 20190916, end: 20191016
  11. NORVASC [Concomitant]
     Active Substance: AMLODIPINE BESYLATE
     Dates: start: 20200201, end: 20200624
  12. NORVASC [Concomitant]
     Active Substance: AMLODIPINE BESYLATE
     Dates: start: 20191213, end: 20200131
  13. NORVASC [Concomitant]
     Active Substance: AMLODIPINE BESYLATE
     Dates: start: 20200625, end: 20201130
  14. ZOLOFT [Concomitant]
     Active Substance: SERTRALINE HYDROCHLORIDE
     Indication: Persistent depressive disorder
     Dates: start: 201110
  15. VESICARE [Concomitant]
     Active Substance: SOLIFENACIN SUCCINATE
     Dosage: BLADDER SYMPTOMS
     Dates: start: 20140812, end: 20191125
  16. VESICARE [Concomitant]
     Active Substance: SOLIFENACIN SUCCINATE
     Dosage: BLADDER SYMPTOMS
     Dates: start: 20191211
  17. VESICARE [Concomitant]
     Active Substance: SOLIFENACIN SUCCINATE
     Dosage: BLADDER SYMPTOMS
     Dates: start: 20131024, end: 20140811
  18. ACETAMINOPHEN [Concomitant]
     Active Substance: ACETAMINOPHEN
     Indication: Premedication
     Dosage: SUBSEQUENT DOSE: 05/NOV/2012
     Dates: start: 20121023
  19. DIPHENHYDRAMINE [Concomitant]
     Active Substance: DIPHENHYDRAMINE
     Indication: Premedication
     Dosage: SUBSEQUENT DOSES: 05/NOV/2012, 08/APR/2013, 23/APR/2013, 23/SEP/2013, 08/OCT/2013, 10/MAR/2014, 25/M
     Dates: start: 20121023
  20. METHYLPREDNISOLONE [Concomitant]
     Active Substance: METHYLPREDNISOLONE
     Indication: Premedication
     Dosage: SUBSEQUENT DOSES: 05/NOV/2012, 08/APR/2013, 23/APR/2013, 23/SEP/2013, 08/OCT/2013, 10/MAR/2014, 25/M
     Dates: start: 20121023
  21. TYLENOL [Concomitant]
     Active Substance: ACETAMINOPHEN
     Indication: Premedication
     Dosage: SUBSEQUENT DOSE: 23/APR/2013, 23/SEP/2013, 08/OCT/2013, 10/MAR/2014, 25/MAR/2014, 25/AUG/2014, 10/SE
     Dates: start: 20130408
  22. TYLENOL [Concomitant]
     Active Substance: ACETAMINOPHEN
     Indication: Pain in extremity
     Dates: start: 2011
  23. BIOTIN [Concomitant]
     Active Substance: BIOTIN
     Dosage: SUPPLEMENT
     Dates: start: 20160701
  24. ZYRTEC (UNITED STATES) [Concomitant]
     Indication: Seasonal allergy
     Dates: start: 2002
  25. BENADRYL [Concomitant]
     Active Substance: DIPHENHYDRAMINE HYDROCHLORIDE
     Indication: Premedication
     Dates: start: 20201214
  26. BENADRYL [Concomitant]
     Active Substance: DIPHENHYDRAMINE HYDROCHLORIDE
     Indication: COVID-19
     Dates: start: 20210204, end: 202102
  27. AMBIEN [Concomitant]
     Active Substance: ZOLPIDEM TARTRATE
     Indication: COVID-19
     Dates: start: 20210224, end: 202102
  28. AMLODIPINE [Concomitant]
     Active Substance: AMLODIPINE BESYLATE
     Indication: Hypertension
     Dates: start: 20201201
  29. IRBESARTAN [Concomitant]
     Active Substance: IRBESARTAN
     Indication: Hypertension
     Dates: start: 20201201
  30. LOSARTAN [Concomitant]
     Active Substance: LOSARTAN
     Indication: Hypertension
     Dates: start: 20200201, end: 20200624
  31. MYRBETRIQ [Concomitant]
     Active Substance: MIRABEGRON
     Dates: start: 20191126, end: 20191210
  32. VANCOMYCIN [Concomitant]
     Active Substance: VANCOMYCIN
     Indication: Diarrhoea
     Dates: start: 20191101, end: 20191114
  33. VANCOMYCIN [Concomitant]
     Active Substance: VANCOMYCIN
     Dates: start: 20191206, end: 20191219
  34. VANCOMYCIN [Concomitant]
     Active Substance: VANCOMYCIN
     Dates: start: 20191012, end: 20191021
  35. VANCOMYCIN [Concomitant]
     Active Substance: VANCOMYCIN
     Dates: start: 20191115, end: 20191121
  36. VANCOMYCIN [Concomitant]
     Active Substance: VANCOMYCIN
     Dates: start: 20191122, end: 20191128
  37. VANCOMYCIN [Concomitant]
     Active Substance: VANCOMYCIN
     Dates: start: 20191129, end: 20191205

REACTIONS (1)
  - Clostridium difficile infection [Recovered/Resolved]

NARRATIVE: CASE EVENT DATE: 20190902
